FAERS Safety Report 15136231 (Version 2)
Quarter: 2020Q1

REPORT INFORMATION
  Report Type: Report from Study
  Country: GB (occurrence: GB)
  Receive Date: 20180712
  Receipt Date: 20200207
  Transmission Date: 20200409
  Serious: Yes (Hospitalization, Other)
  Sender: FDA-Public Use
  Company Number: GB-VERTEX PHARMACEUTICALS-2018-004740

PATIENT
  Age: 28 Year
  Sex: Female
  Weight: 40 kg

DRUGS (12)
  1. TOBRAMYCIN. [Concomitant]
     Active Substance: TOBRAMYCIN
     Dosage: UNK
     Route: 055
  2. FOSTAIR [Concomitant]
     Active Substance: BECLOMETHASONE\FORMOTEROL
  3. AZITHROMYCIN ANHYDROUS. [Concomitant]
     Active Substance: AZITHROMYCIN ANHYDROUS
  4. COLISTIN [Concomitant]
     Active Substance: COLISTIN
     Dosage: 2 MEGA UNITS, TID
     Route: 042
     Dates: start: 20180612, end: 20180619
  5. CREON [Concomitant]
     Active Substance: PANCRELIPASE AMYLASE\PANCRELIPASE LIPASE\PANCRELIPASE PROTEASE
  6. CEFTAZIDIME. [Concomitant]
     Active Substance: CEFTAZIDIME
     Dosage: 3 GRAM, TID
     Route: 042
     Dates: start: 20180612
  7. TIOTROPIUM [Concomitant]
     Active Substance: TIOTROPIUM
  8. SALBUTAMOL [Concomitant]
     Active Substance: ALBUTEROL
     Indication: RESPIRATORY FAILURE
  9. ORKAMBI [Suspect]
     Active Substance: IVACAFTOR\LUMACAFTOR
     Indication: CYSTIC FIBROSIS
     Dosage: 1 DOSAGE FORM, BID
     Route: 048
     Dates: start: 20180620
  10. PULMOZYME [Concomitant]
     Active Substance: DORNASE ALFA
  11. CAYSTON [Concomitant]
     Active Substance: AZTREONAM
     Indication: RESPIRATORY FAILURE
     Dosage: ALTERNATING WITH TOBRAMYCIN
     Route: 055
  12. TOBRAMYCIN. [Concomitant]
     Active Substance: TOBRAMYCIN
     Dosage: UNK
     Route: 042
     Dates: start: 20180619

REACTIONS (8)
  - Chest discomfort [Unknown]
  - Pulmonary function test decreased [Not Recovered/Not Resolved]
  - Insomnia [Unknown]
  - Weight decreased [Unknown]
  - Depression [Unknown]
  - Headache [Unknown]
  - Dyspnoea [Recovering/Resolving]
  - Respiratory failure [Not Recovered/Not Resolved]

NARRATIVE: CASE EVENT DATE: 201806
